FAERS Safety Report 13892550 (Version 1)
Quarter: 2017Q3

REPORT INFORMATION
  Report Type: Spontaneous
  Country: US (occurrence: US)
  Receive Date: 20170822
  Receipt Date: 20170822
  Transmission Date: 20171127
  Serious: No
  Sender: FDA-Public Use
  Company Number: US-ROCHE-724315

PATIENT
  Age: 48 Year
  Sex: Female
  Weight: 72 kg

DRUGS (10)
  1. ACTEMRA [Suspect]
     Active Substance: TOCILIZUMAB
     Indication: RHEUMATOID ARTHRITIS
     Dosage: FORM: INFUSION
     Route: 042
     Dates: start: 20100615, end: 20100615
  2. ACTEMRA [Suspect]
     Active Substance: TOCILIZUMAB
     Route: 042
     Dates: start: 20100819, end: 20100819
  3. PREDNISONE. [Concomitant]
     Active Substance: PREDNISONE
     Dosage: 2-4 TABLET
     Route: 048
  4. VITAMIN A [Concomitant]
     Active Substance: VITAMIN A
     Dosage: 10000 UNIT CAPSULE, FREQUENCY: EVERY MORNING
     Route: 065
  5. CIPRO [Concomitant]
     Active Substance: CIPROFLOXACIN HYDROCHLORIDE
     Route: 048
  6. ACTEMRA [Suspect]
     Active Substance: TOCILIZUMAB
     Route: 042
     Dates: start: 20100715, end: 20100715
  7. OXYCODONE HYDROCHLORIDE. [Concomitant]
     Active Substance: OXYCODONE HYDROCHLORIDE
     Dosage: DOSE: 1-2 EVERY, 8-12 HOURS, STRENGTH: 40 MG AND 60 MG
     Route: 065
  8. KLOR-CON [Concomitant]
     Active Substance: POTASSIUM CHLORIDE
     Route: 048
  9. POTASSIUM [Concomitant]
     Active Substance: POTASSIUM
     Route: 065
  10. HYDROCHLOROTHIAZIDE. [Concomitant]
     Active Substance: HYDROCHLOROTHIAZIDE
     Route: 065

REACTIONS (3)
  - Chills [Recovered/Resolved]
  - Chest discomfort [Recovered/Resolved]
  - Flushing [Recovered/Resolved]

NARRATIVE: CASE EVENT DATE: 20100819
